FAERS Safety Report 12922306 (Version 1)
Quarter: 2016Q4

REPORT INFORMATION
  Report Type: Spontaneous
  Country: US (occurrence: US)
  Receive Date: 20161107
  Receipt Date: 20161107
  Transmission Date: 20170207
  Serious: Yes (Hospitalization)
  Sender: FDA-Public Use
  Company Number: None

PATIENT
  Age: 76 Year
  Sex: Female

DRUGS (2)
  1. GENGRAF [Suspect]
     Active Substance: CYCLOSPORINE
     Indication: RENAL TRANSPLANT
     Dosage: QAM
     Route: 048
     Dates: start: 20160202
  2. MYCOPHENOLATE 250MG CAP TEVA PHARMACEUTICALS [Suspect]
     Active Substance: MYCOPHENOLATE MOFETIL
     Indication: RENAL TRANSPLANT
     Route: 048
     Dates: start: 20160202

REACTIONS (2)
  - Hospitalisation [None]
  - Drug dose omission [None]

NARRATIVE: CASE EVENT DATE: 201610
